FAERS Safety Report 5463289-6 (Version None)
Quarter: 2007Q3

REPORT INFORMATION
  Report Type: 
  Country: None (occurrence: None)
  Receive Date: 20070920
  Receipt Date: 20070911
  Transmission Date: 20080115
  Serious: Yes (Other)
  Sender: FDA-Public Use
  Company Number: B0487391A

PATIENT
  Sex: Female

DRUGS (3)
  1. NIQUITIN CQ CLEAR 21MG [Suspect]
     Route: 062
  2. PHENOBARBITONE [Concomitant]
     Indication: EPILEPSY
  3. KEPPRA [Concomitant]
     Indication: EPILEPSY

REACTIONS (2)
  - EPILEPSY [None]
  - MUSCLE TWITCHING [None]
